FAERS Safety Report 9425150 (Version 2)
Quarter: 2013Q3

REPORT INFORMATION
  Report Type: Spontaneous
  Country: IT (occurrence: IT)
  Receive Date: 20130729
  Receipt Date: 20130926
  Transmission Date: 20140515
  Serious: Yes (Other)
  Sender: FDA-Public Use
  Company Number: IT-B.I. PHARMACEUTICALS,INC./RIDGEFIELD-2013-IT-00408IT

PATIENT
  Age: 48 Year
  Sex: Female

DRUGS (3)
  1. VIRAMUNE [Suspect]
     Indication: HIV INFECTION
     Dosage: 400 MG
     Route: 048
     Dates: start: 20130211, end: 20130211
  2. LEVOFLOXACIN [Concomitant]
  3. KIVEXA [Concomitant]
     Dosage: STRENGHT: 300+600 MG

REACTIONS (4)
  - Aphthous stomatitis [Unknown]
  - Blister [Unknown]
  - Mucosal inflammation [Unknown]
  - Rash maculo-papular [Unknown]
